FAERS Safety Report 18079483 (Version 2)
Quarter: 2020Q3

REPORT INFORMATION
  Report Type: Spontaneous
  Country: US (occurrence: US)
  Receive Date: 20200728
  Receipt Date: 20200903
  Transmission Date: 20201103
  Serious: Yes (Hospitalization, Other)
  Sender: FDA-Public Use
  Company Number: US-INCYTE CORPORATION-2020IN007120

PATIENT

DRUGS (2)
  1. JAKAFI [Suspect]
     Active Substance: RUXOLITINIB
     Indication: POLYCYTHAEMIA VERA
     Dosage: 20 MILLIGRAM BID ON MWF AND 20MG QD ON TTHSSU
     Route: 048
     Dates: start: 20191014
  2. JAKAFI [Suspect]
     Active Substance: RUXOLITINIB
     Dosage: 20 MILLIGRAM, BID
     Route: 048

REACTIONS (5)
  - Vomiting [Recovering/Resolving]
  - Constipation [Recovering/Resolving]
  - Chronic kidney disease [Unknown]
  - Illness [Recovering/Resolving]
  - Diarrhoea [Recovering/Resolving]
